FAERS Safety Report 15068105 (Version 2)
Quarter: 2018Q3

REPORT INFORMATION
  Report Type: Spontaneous
  Country: FR (occurrence: FR)
  Receive Date: 20180626
  Receipt Date: 20180713
  Transmission Date: 20181010
  Serious: Yes (Hospitalization)
  Sender: FDA-Public Use
  Company Number: FR-MYLANLABS-2018M1044226

PATIENT
  Age: 67 Year
  Sex: Male
  Weight: 61 kg

DRUGS (6)
  1. FLUCONAZOLE KABI [Concomitant]
     Active Substance: FLUCONAZOLE
     Indication: FEBRILE BONE MARROW APLASIA
     Dosage: 400 MG, QD
     Route: 042
     Dates: start: 20170612, end: 20170619
  2. OXALIPLATINE ACCORD [Suspect]
     Active Substance: OXALIPLATIN
     Indication: MANTLE CELL LYMPHOMA STAGE II
     Dosage: 180 MG, CYCLE (1 CYCLICAL)
     Route: 042
     Dates: start: 20170214, end: 20170420
  3. BICNU [Suspect]
     Active Substance: CARMUSTINE
     Indication: MANTLE CELL LYMPHOMA STAGE II
     Dosage: 532.8 MG, QD
     Route: 042
     Dates: start: 20170602, end: 20170602
  4. ETOPOSIDE MYLAN 20 MG/ML, SOLUTION ? DILUER POUR PERFUSION [Suspect]
     Active Substance: ETOPOSIDE
     Indication: MANTLE CELL LYMPHOMA STAGE II
     Dosage: 360 MG, QD
     Route: 042
     Dates: start: 20170603, end: 20170606
  5. CYTARABINE ACCORD [Suspect]
     Active Substance: CYTARABINE
     Indication: MANTLE CELL LYMPHOMA STAGE II
     Dosage: 360 MG, QD
     Route: 042
     Dates: start: 20170603, end: 20170606
  6. ALKERAN [Suspect]
     Active Substance: MELPHALAN
     Indication: MANTLE CELL LYMPHOMA STAGE II
     Dosage: 250 MG, QD
     Route: 042
     Dates: start: 20170606, end: 20170606

REACTIONS (1)
  - Venoocclusive liver disease [Recovered/Resolved]

NARRATIVE: CASE EVENT DATE: 20170620
